FAERS Safety Report 7470866-X (Version None)
Quarter: 2011Q2

REPORT INFORMATION
  Report Type: 
  Country: None (occurrence: None)
  Receive Date: 20110510
  Receipt Date: 20110503
  Transmission Date: 20111010
  Serious: Yes (Other)
  Sender: FDA-Public Use
  Company Number: DE-PFIZER INC-2011094762

PATIENT
  Age: 70 Year
  Sex: Male

DRUGS (2)
  1. AMLODIPINE/ HYDROCHLOROTHIAZIDE/ VALSARTAN [Concomitant]
     Indication: HYPERTENSION
     Dosage: 0.5 DF, 1X/DAY
     Dates: start: 20100101
  2. VIAGRA [Suspect]
     Indication: ERECTILE DYSFUNCTION
     Dosage: 50 MG, AS NEEDED

REACTIONS (2)
  - COLOUR BLINDNESS [None]
  - MACULAR DEGENERATION [None]
